FAERS Safety Report 10421261 (Version 1)
Quarter: 2014Q3

REPORT INFORMATION
  Report Type: Spontaneous
  Country: US (occurrence: US)
  Receive Date: 20140830
  Receipt Date: 20140830
  Transmission Date: 20150326
  Serious: Yes (Hospitalization)
  Sender: FDA-Public Use
  Company Number: PHEH2014US016887

PATIENT
  Sex: Female

DRUGS (6)
  1. VALSARTAN. [Suspect]
     Active Substance: VALSARTAN
     Dosage: UNK UKN, UNK
  2. VYTORIN [Suspect]
     Active Substance: EZETIMIBE\SIMVASTATIN
     Dosage: UNK UKN, UNK
  3. DIOVAN HCT [Suspect]
     Active Substance: HYDROCHLOROTHIAZIDE\VALSARTAN
     Indication: HYPERTENSION
     Dosage: 1 DF, UNK (VALS 160 MG, HCTZ 25 MG)
  4. HYDROCHLOROTHIAZIDE. [Suspect]
     Active Substance: HYDROCHLOROTHIAZIDE
     Dosage: UNK UKN, UNK
  5. SIMVASTATIN. [Suspect]
     Active Substance: SIMVASTATIN
     Dosage: UNK UKN, UNK
  6. ENALAPRIL [Suspect]
     Active Substance: ENALAPRIL
     Dosage: UNK UKN, UNK

REACTIONS (10)
  - Urinary incontinence [Unknown]
  - Anxiety [Recovering/Resolving]
  - Influenza like illness [Unknown]
  - Pyrexia [Unknown]
  - Cough [Unknown]
  - Headache [Recovering/Resolving]
  - Feeling abnormal [Recovering/Resolving]
  - Blood pressure increased [Unknown]
  - Frustration [Unknown]
  - Chest discomfort [Recovering/Resolving]
